FAERS Safety Report 22539330 (Version 1)
Quarter: 2023Q2

REPORT INFORMATION
  Report Type: Spontaneous
  Country: US (occurrence: US)
  Receive Date: 20230609
  Receipt Date: 20230609
  Transmission Date: 20230721
  Serious: Yes (Hospitalization, Other)
  Sender: FDA-Public Use
  Company Number: US-ALEMBIC PHARMACUETICALS LIMITED-2023SCAL000289

PATIENT

DRUGS (3)
  1. LITHIUM CARBONATE [Suspect]
     Active Substance: LITHIUM CARBONATE
     Indication: Bipolar disorder
     Dosage: 600 MILLIGRAM, BID
     Route: 065
  2. RISPERIDONE [Concomitant]
     Active Substance: RISPERIDONE
     Indication: Bipolar disorder
     Dosage: 2 MG, BID
     Route: 065
  3. FLURAZEPAM [Concomitant]
     Active Substance: FLURAZEPAM HYDROCHLORIDE
     Indication: Bipolar disorder
     Dosage: 60 MG, QD
     Route: 065

REACTIONS (12)
  - Polyneuropathy [Not Recovered/Not Resolved]
  - Muscular weakness [Not Recovered/Not Resolved]
  - Pain in extremity [Not Recovered/Not Resolved]
  - Hypokalaemia [Unknown]
  - Sinus tachycardia [Unknown]
  - Loss of consciousness [Recovered/Resolved]
  - Acute kidney injury [Unknown]
  - Drug level increased [Recovering/Resolving]
  - Asthenia [Unknown]
  - Dehydration [Unknown]
  - Diarrhoea [Unknown]
  - Toxicity to various agents [Recovering/Resolving]

NARRATIVE: CASE EVENT DATE: 20180916
